FAERS Safety Report 4426774-1 (Version None)
Quarter: 2004Q3

REPORT INFORMATION
  Report Type: 
  Country: None (occurrence: None)
  Receive Date: 20040812
  Receipt Date: 20040812
  Transmission Date: 20050211
  Serious: Yes (Hospitalization)
  Sender: FDA-Public Use
  Company Number: None

PATIENT
  Age: 80 Year
  Sex: Male
  Weight: 58.514 kg

DRUGS (13)
  1. ASPIRIN [Suspect]
     Dosage: 325 MG   DAILY   ORAL
     Route: 048
  2. OTC NSAIDS [Suspect]
  3. ALBUTEROL [Concomitant]
  4. CALCIUM/VIT D [Concomitant]
  5. DOCUSATE NA [Concomitant]
  6. FERROUS SULFATE TAB [Concomitant]
  7. FUNISOLIDE NASAL SPRAY [Concomitant]
  8. HYDROCHLOROTHIAZIDE [Concomitant]
  9. LORATADINE [Concomitant]
  10. LOVASTATIN [Concomitant]
  11. M.V.I. [Concomitant]
  12. NIFEDIPINE [Concomitant]
  13. SALMETEROL [Concomitant]

REACTIONS (10)
  - ABDOMINAL PAIN [None]
  - ANAEMIA [None]
  - ASTHENIA [None]
  - DIZZINESS POSTURAL [None]
  - EROSIVE DUODENITIS [None]
  - FAECES DISCOLOURED [None]
  - GASTRITIS [None]
  - MARKEDLY REDUCED DIETARY INTAKE [None]
  - OESOPHAGEAL ULCER [None]
  - SYNCOPE [None]
